FAERS Safety Report 13615712 (Version 3)
Quarter: 2017Q3

REPORT INFORMATION
  Report Type: Spontaneous
  Country: JP (occurrence: JP)
  Receive Date: 20170606
  Receipt Date: 20170830
  Transmission Date: 20171127
  Serious: Yes (Life-Threatening, Hospitalization, Disabling)
  Sender: FDA-Public Use
  Company Number: JP-PFIZER INC-2017240207

PATIENT
  Age: 79 Year
  Sex: Female

DRUGS (7)
  1. TAKEPRON [Concomitant]
     Active Substance: LANSOPRAZOLE
     Dosage: 15 MG, 1X/DAY
     Route: 048
  2. BEZATOL [Concomitant]
     Active Substance: BEZAFIBRATE
     Indication: LIPID METABOLISM DISORDER
     Dosage: 200 MG, 2X/DAY
     Route: 048
  3. HYPEN /00340101/ [Concomitant]
     Dosage: 200 MG, 2X/DAY
     Route: 048
  4. RHEUMATREX [Suspect]
     Active Substance: METHOTREXATE SODIUM
     Indication: RHEUMATOID ARTHRITIS
     Dosage: UNK
     Route: 048
  5. FOLIAMIN [Concomitant]
     Active Substance: FOLIC ACID
     Dosage: 5 MG, 1X/DAY
     Route: 048
  6. NORVASC [Concomitant]
     Active Substance: AMLODIPINE BESYLATE
     Indication: HYPERTENSION
     Dosage: 2.5 MG, 1X/DAY
     Route: 048
  7. MUCOSTA [Concomitant]
     Active Substance: REBAMIPIDE
     Dosage: 100 MG, 2X/DAY
     Route: 048

REACTIONS (3)
  - Encephalitis brain stem [Not Recovered/Not Resolved]
  - Listeria encephalitis [Not Recovered/Not Resolved]
  - Pubis fracture [Unknown]

NARRATIVE: CASE EVENT DATE: 20170506
